FAERS Safety Report 16123594 (Version 1)
Quarter: 2019Q1

REPORT INFORMATION
  Report Type: Spontaneous
  Country: FR (occurrence: FR)
  Receive Date: 20190327
  Receipt Date: 20190327
  Transmission Date: 20190418
  Serious: Yes (Hospitalization)
  Sender: FDA-Public Use
  Company Number: FR-PFIZER INC-2019124062

PATIENT
  Age: 18 Year
  Sex: Female

DRUGS (5)
  1. VENLAFAXINE HCL [Suspect]
     Active Substance: VENLAFAXINE HYDROCHLORIDE
     Dosage: 262.5 MG, SINGLE
     Route: 048
     Dates: start: 20180601, end: 20180601
  2. LORMETAZEPAM [Suspect]
     Active Substance: LORMETAZEPAM
     Dosage: 4 MG, SINGLE
     Route: 048
     Dates: start: 20180601, end: 20180601
  3. MELATONINE [Suspect]
     Active Substance: MELATONIN
     Dosage: 262.5 MG, SINGLE
     Route: 048
     Dates: start: 20180601, end: 20180601
  4. VENLAFAXINE HCL [Suspect]
     Active Substance: VENLAFAXINE HYDROCHLORIDE
     Dosage: 262.5 MG, SINGLE
     Route: 048
     Dates: start: 20180601, end: 20180601
  5. MELATONINE [Suspect]
     Active Substance: MELATONIN
     Dosage: 3 MG, SINGLE
     Route: 048
     Dates: start: 20180601, end: 20180601

REACTIONS (3)
  - Somnolence [Recovered/Resolved]
  - Disease recurrence [Recovered/Resolved]
  - Toxicity to various agents [Recovered/Resolved]

NARRATIVE: CASE EVENT DATE: 20180601
